FAERS Safety Report 5366380-8 (Version None)
Quarter: 2007Q2

REPORT INFORMATION
  Report Type: 
  Country: None (occurrence: None)
  Receive Date: 20070622
  Receipt Date: 20070612
  Transmission Date: 20071010
  Serious: Yes (Hospitalization, Disabling)
  Sender: FDA-Public Use
  Company Number: US-JNJFOC-20070504761

PATIENT
  Sex: Male
  Weight: 73.48 kg

DRUGS (5)
  1. REMICADE [Suspect]
     Route: 042
  2. REMICADE [Suspect]
     Indication: CROHN'S DISEASE
     Route: 042
  3. ASPIRIN [Concomitant]
     Indication: PREMEDICATION
     Route: 048
  4. ENTOCORT EC [Concomitant]
     Route: 048
  5. ALLEGRA [Concomitant]
     Indication: PREMEDICATION
     Route: 048

REACTIONS (7)
  - ANXIETY [None]
  - ASTHENIA [None]
  - BODY TEMPERATURE INCREASED [None]
  - IMMOBILE [None]
  - LEUKOCYTOSIS [None]
  - POLYARTHRITIS [None]
  - VOMITING [None]
